FAERS Safety Report 9393111 (Version 1)
Quarter: 2013Q3

REPORT INFORMATION
  Report Type: Spontaneous
  Country: NL (occurrence: NL)
  Receive Date: 20130710
  Receipt Date: 20130710
  Transmission Date: 20140515
  Serious: Yes (Death)
  Sender: FDA-Public Use
  Company Number: NL-SANOFI-AVENTIS-2013SA066804

PATIENT
  Age: 67 Year
  Sex: Female
  Weight: 118 kg

DRUGS (15)
  1. RIFADIN [Suspect]
     Indication: OSTEOSYNTHESIS
     Route: 048
     Dates: start: 20130329
  2. XARELTO [Suspect]
     Indication: THROMBOSIS PROPHYLAXIS
     Route: 048
     Dates: start: 20130426
  3. XARELTO [Suspect]
     Indication: ATRIAL FIBRILLATION
     Route: 048
     Dates: start: 20130426
  4. PROMOCARD [Concomitant]
     Route: 048
  5. MOVICOLON [Concomitant]
     Route: 048
  6. OXAZEPAM [Concomitant]
     Route: 048
  7. CIPROFLOXACIN [Concomitant]
     Route: 048
  8. PANTOPRAZOLE [Concomitant]
     Route: 048
  9. AMLODIPINE [Concomitant]
     Route: 048
  10. NEBILET [Concomitant]
     Route: 048
  11. PARACETAMOL [Concomitant]
     Route: 048
  12. ATROVENT [Concomitant]
     Route: 055
  13. CRESTOR [Concomitant]
     Route: 048
  14. ALENDRONIC ACID [Concomitant]
     Route: 048
  15. CALCICHEW [Concomitant]
     Route: 048

REACTIONS (1)
  - Pulmonary embolism [Fatal]
